FAERS Safety Report 14399540 (Version 3)
Quarter: 2018Q1

REPORT INFORMATION
  Report Type: Spontaneous
  Country: US (occurrence: US)
  Receive Date: 20180117
  Receipt Date: 20180323
  Transmission Date: 20180509
  Serious: No
  Sender: FDA-Public Use
  Company Number: US-JNJFOC-20171132658

PATIENT
  Age: 60 Year
  Sex: Male

DRUGS (1)
  1. ZYTIGA [Suspect]
     Active Substance: ABIRATERONE ACETATE
     Indication: PRODUCT USED FOR UNKNOWN INDICATION
     Route: 048
     Dates: start: 20171019, end: 2018

REACTIONS (2)
  - Drug dose omission [Unknown]
  - Therapy cessation [Unknown]

NARRATIVE: CASE EVENT DATE: 20171122
